FAERS Safety Report 9437076 (Version 3)
Quarter: 2013Q3

REPORT INFORMATION
  Report Type: Report from Study
  Country: US (occurrence: US)
  Receive Date: 20130802
  Receipt Date: 20130822
  Transmission Date: 20140515
  Serious: Yes (Death, Life-Threatening, Hospitalization, Other)
  Sender: FDA-Public Use
  Company Number: US-ASTELLAS-2013EU006280

PATIENT
  Age: 64 Year
  Sex: Male
  Weight: 126.4 kg

DRUGS (29)
  1. BLINDED FIDAXOMICIN [Suspect]
     Indication: PROPHYLAXIS
     Dosage: 1 TABLET, QD
     Route: 048
     Dates: start: 20130604, end: 20130629
  2. TACROLIMUS SYSTEMIC [Suspect]
     Indication: IMMUNOSUPPRESSION
     Dosage: 2 MG, BID
     Route: 048
     Dates: start: 20130621, end: 20130624
  3. TACROLIMUS SYSTEMIC [Suspect]
     Dosage: 0.5 MG, SINGLE
     Route: 048
     Dates: start: 20130624, end: 20130624
  4. TACROLIMUS SYSTEMIC [Suspect]
     Dosage: 2.5 MG, BID
     Route: 048
     Dates: start: 20130624, end: 20130706
  5. TACROLIMUS SYSTEMIC [Suspect]
     Dosage: 1 MG, BID
     Route: 048
     Dates: start: 20130706, end: 20130712
  6. INSULIN LISPRO [Concomitant]
     Indication: HYPERGLYCAEMIA
     Dosage: 2 U, SINGLE
     Route: 058
     Dates: start: 20130624, end: 20130624
  7. INSULIN LISPRO [Concomitant]
     Dosage: 1 U, SINGLE
     Route: 058
     Dates: start: 20130624, end: 20130624
  8. INSULIN LISPRO [Concomitant]
     Dosage: 1 U, SINGLE
     Route: 058
     Dates: start: 20130624, end: 20130624
  9. INSULIN LISPRO [Concomitant]
     Dosage: UNK U, UID/QD
     Route: 058
     Dates: start: 20130624, end: 20130624
  10. INSULIN LISPRO [Concomitant]
     Dosage: 2 U, SINGLE
     Route: 058
     Dates: start: 20130625, end: 20130625
  11. INSULIN LISPRO [Concomitant]
     Dosage: UNK
     Route: 058
     Dates: start: 20130625, end: 20130625
  12. SUCRALFATE [Concomitant]
     Indication: GASTROOESOPHAGEAL REFLUX DISEASE
     Dosage: 1 G, TID
     Route: 048
     Dates: start: 20130620, end: 20130717
  13. FUROSEMIDE [Concomitant]
     Indication: DIURETIC THERAPY
     Dosage: 40 MG, BID
     Route: 042
     Dates: start: 20130623, end: 20130625
  14. ONDANSETRON [Concomitant]
     Indication: NAUSEA
     Dosage: 4 MG, Q6H PRN
     Route: 042
     Dates: start: 20130616, end: 20130625
  15. LOSARTAN [Concomitant]
     Indication: ATRIAL FIBRILLATION
     Dosage: 25 MG, QD
     Route: 048
     Dates: start: 20130201, end: 20130718
  16. LORAZEPAM [Concomitant]
     Indication: NAUSEA
     Dosage: 1 MG, Q6H PRN
     Route: 042
     Dates: start: 20130608, end: 20130625
  17. AMIODARONE [Concomitant]
     Indication: ARRHYTHMIA
     Dosage: 400 MG, QD
     Route: 048
     Dates: start: 20130622
  18. FLUCONAZOLE [Concomitant]
     Indication: ANTIFUNGAL PROPHYLAXIS
     Dosage: 400 MG, QD
     Route: 048
     Dates: start: 20130611, end: 20130716
  19. ACYCLOVIR [Concomitant]
     Indication: ANTIVIRAL PROPHYLAXIS
     Dosage: 400 MG, Q8H
     Route: 048
     Dates: start: 20130612, end: 20130709
  20. POTASSIUM CHLORIDE [Concomitant]
     Indication: PROPHYLAXIS
     Dosage: 40 MEQ, Q2H PRN
     Route: 048
     Dates: start: 20130624, end: 20130624
  21. POTASSIUM CHLORIDE [Concomitant]
     Dosage: 20 MEQ, QD
     Route: 048
     Dates: start: 20130626, end: 20130628
  22. METOPROLOL [Concomitant]
     Indication: CARDIOVASCULAR DISORDER
     Dosage: 100 MG, BID
     Route: 048
     Dates: start: 20130624, end: 20130708
  23. MEROPENEM [Concomitant]
     Indication: NEUTROPENIA
     Dosage: 1000 MG, Q8H
     Route: 042
     Dates: start: 20130617, end: 20130624
  24. MAGNESIUM SULFATE [Concomitant]
     Indication: PROPHYLAXIS
     Dosage: 4000 MG, Q3H PRN
     Route: 042
     Dates: start: 20130617, end: 20130624
  25. POLYVINYL ALCOHOL [Concomitant]
     Indication: DRY EYE
     Dosage: 2 GTT, Q4H PRN
     Route: 047
     Dates: start: 20130624, end: 20130708
  26. TYLENOL [Concomitant]
     Indication: HEADACHE
     Dosage: 250 MG, SINGLE
     Route: 048
     Dates: start: 20130701, end: 20130701
  27. DAPSONE [Concomitant]
     Indication: INFECTION PROPHYLAXIS
     Dosage: 100 MG, QD
     Route: 048
     Dates: start: 20130706
  28. PREDNISONE [Concomitant]
     Indication: PROPHYLAXIS AGAINST GRAFT VERSUS HOST DISEASE
     Dosage: 20 MG, QD
     Route: 048
     Dates: start: 20130706, end: 20130716
  29. CEFPODOXIME [Concomitant]
     Indication: PNEUMONIA
     Dosage: 200 MG, BID
     Route: 048
     Dates: start: 20130706, end: 20130708

REACTIONS (1)
  - Graft versus host disease [Fatal]
